FAERS Safety Report 21436196 (Version 1)
Quarter: 2022Q4

REPORT INFORMATION
  Report Type: Spontaneous
  Country: US (occurrence: US)
  Receive Date: 20221010
  Receipt Date: 20221010
  Transmission Date: 20230113
  Serious: No
  Sender: FDA-Public Use
  Company Number: US-SA-SAC20221004000366

PATIENT
  Sex: Female

DRUGS (2)
  1. DUPIXENT [Suspect]
     Active Substance: DUPILUMAB
     Indication: Asthma
     Dosage: 200 MG, QOW
     Route: 058
     Dates: start: 20220727
  2. OLUMIANT [Concomitant]
     Active Substance: BARICITINIB

REACTIONS (2)
  - Pain [Unknown]
  - Asthma [Unknown]

NARRATIVE: CASE EVENT DATE: 20220801
